FAERS Safety Report 6850053-6 (Version None)
Quarter: 2010Q3

REPORT INFORMATION
  Report Type: 
  Country: None (occurrence: None)
  Receive Date: 20100716
  Receipt Date: 20071010
  Transmission Date: 20110219
  Serious: No
  Sender: FDA-Public Use
  Company Number: US-PFIZER INC-2007085557

PATIENT
  Sex: Female
  Weight: 59 kg

DRUGS (4)
  1. CHANTIX [Suspect]
     Indication: SMOKING CESSATION THERAPY
     Dates: start: 20071006
  2. ZOLPIDEM [Concomitant]
  3. PRILOSEC [Concomitant]
     Indication: DYSPEPSIA
  4. CITALOPRAM HYDROBROMIDE [Concomitant]
     Indication: DEPRESSION

REACTIONS (1)
  - HEADACHE [None]
